FAERS Safety Report 23657611 (Version 1)
Quarter: 2024Q1

REPORT INFORMATION
  Report Type: Spontaneous
  Country: US (occurrence: None)
  Receive Date: 20240320
  Receipt Date: 20240320
  Transmission Date: 20240409
  Serious: Yes (Other)
  Sender: FDA-Public Use
  Company Number: None

PATIENT
  Age: 43 Year
  Sex: Female
  Weight: 58.97 kg

DRUGS (27)
  1. ITRACONAZOLE [Suspect]
     Active Substance: ITRACONAZOLE
     Indication: Pulmonary mass
     Dosage: FREQUENCY : TWICE A DAY;?
     Route: 048
     Dates: start: 20240213, end: 20240219
  2. ZYRTEC [Concomitant]
     Active Substance: CETIRIZINE HYDROCHLORIDE
  3. SINGULAIR [Concomitant]
     Active Substance: MONTELUKAST SODIUM
  4. TIZANIDINE [Concomitant]
     Active Substance: TIZANIDINE
  5. SPIRONOLACTONE [Concomitant]
     Active Substance: SPIRONOLACTONE
  6. PROGESTERONE [Concomitant]
     Active Substance: PROGESTERONE
  7. BREZTRI [Concomitant]
     Active Substance: BUDESONIDE\FORMOTEROL\GLYCOPYRROLATE
  8. SYNTHROID [Concomitant]
     Active Substance: LEVOTHYROXINE SODIUM
  9. ATOMOXETINE (STRATTERA) [Concomitant]
  10. 2 LOW DOSE ASPIRIN [Concomitant]
  11. PREVACID [Concomitant]
     Active Substance: LANSOPRAZOLE
  12. EPICERAM FACE CREAM [Concomitant]
  13. KETOCONAZOLE [Concomitant]
     Active Substance: KETOCONAZOLE
  14. ALBUTEROL [Concomitant]
     Active Substance: ALBUTEROL
  15. FLONASE AND/OR NASONEX [Concomitant]
  16. RELPAX [Concomitant]
     Active Substance: ELETRIPTAN HYDROBROMIDE
  17. AZELASTINE HYDROCHLORIDE [Concomitant]
     Active Substance: AZELASTINE HYDROCHLORIDE
  18. PHAZYME [Concomitant]
     Active Substance: DIMETHICONE 410
  19. COLLAGEN [Concomitant]
     Active Substance: COLLAGEN
  20. FLORASTOR PROBIOTIC [Concomitant]
  21. VITAMIN D [Concomitant]
     Active Substance: VITAMIN D NOS
  22. PRASTERONE [Concomitant]
     Active Substance: PRASTERONE
  23. VITAMIN C [Concomitant]
     Active Substance: ASCORBIC ACID
  24. ZINC [Concomitant]
     Active Substance: PYRITHIONE ZINC\ZINC\ZINC CHLORIDE
  25. MAGNESIUM GLYCINATE AND CITRATE [Concomitant]
  26. ELDERBERRY IMMUNE SUPPORT GUMMIES [Concomitant]
  27. ELETROLYTES [Concomitant]

REACTIONS (10)
  - Penicillium infection [None]
  - Muscle spasms [None]
  - Muscle spasms [None]
  - Insomnia [None]
  - Pollakiuria [None]
  - Constipation [None]
  - Nausea [None]
  - Paraesthesia [None]
  - Headache [None]
  - Dyspnoea [None]

NARRATIVE: CASE EVENT DATE: 20240219
